FAERS Safety Report 5037989-6 (Version None)
Quarter: 2006Q2

REPORT INFORMATION
  Report Type: 
  Country: None (occurrence: None)
  Receive Date: 20060616
  Receipt Date: 20050906
  Transmission Date: 20061013
  Serious: Yes (Other)
  Sender: FDA-Public Use
  Company Number: NUBN20050014

PATIENT
  Age: 54 Year
  Sex: Male

DRUGS (7)
  1. NUBAIN [Suspect]
     Indication: CHEST PAIN
     Dosage: ONCE IV
     Route: 042
     Dates: start: 20050701, end: 20050701
  2. OXYCONTIN [Concomitant]
  3. PERCOCET [Concomitant]
  4. ALPRAZOLAM [Concomitant]
  5. CYMBALTA [Concomitant]
  6. SEROQUEL [Concomitant]
  7. CEPHALEXIN [Concomitant]

REACTIONS (5)
  - BALANCE DISORDER [None]
  - CONVULSION [None]
  - DIZZINESS [None]
  - MEMORY IMPAIRMENT [None]
  - PAIN [None]
